FAERS Safety Report 15556838 (Version 2)
Quarter: 2019Q1

REPORT INFORMATION
  Report Type: Spontaneous
  Country: IT (occurrence: IT)
  Receive Date: 20181026
  Receipt Date: 20190128
  Transmission Date: 20190417
  Serious: Yes (Other)
  Sender: FDA-Public Use
  Company Number: IT-MYLANLABS-2017M1054556

PATIENT
  Age: 34 Year
  Sex: Female

DRUGS (6)
  1. LETROZOLE. [Suspect]
     Active Substance: LETROZOLE
     Indication: OVULATION INDUCTION
     Dosage: 5 MG, QD
  2. LETROZOLE. [Suspect]
     Active Substance: LETROZOLE
     Indication: INVASIVE DUCTAL BREAST CARCINOMA
     Dosage: 2.5 MG, QD
  3. FOLLICLE STIMULATING HORMONE, RECOMBINANT [Concomitant]
     Active Substance: FOLLITROPIN
     Indication: INVASIVE DUCTAL BREAST CARCINOMA
  4. TRIPTORELIN [Concomitant]
     Active Substance: TRIPTORELIN
     Indication: PROPHYLAXIS
     Dosage: 0.1 MG, QD
  5. FOLLICLE STIMULATING HORMONE, RECOMBINANT [Concomitant]
     Active Substance: FOLLITROPIN
     Indication: OVULATION INDUCTION
     Dosage: 50 IU, QD
  6. TRIPTORELIN [Concomitant]
     Active Substance: TRIPTORELIN
     Indication: OVULATION INDUCTION
     Dosage: 0.2 MG, UNK
     Route: 040

REACTIONS (1)
  - Progesterone increased [Unknown]
